FAERS Safety Report 16847666 (Version 2)
Quarter: 2021Q1

REPORT INFORMATION
  Report Type: Spontaneous
  Country: US (occurrence: US)
  Receive Date: 20190924
  Receipt Date: 20210320
  Transmission Date: 20210419
  Serious: No
  Sender: FDA-Public Use
  Company Number: US-ACORDA-ACO_160731_2019

PATIENT
  Sex: Female

DRUGS (3)
  1. INBRIJA [Suspect]
     Active Substance: LEVODOPA
     Indication: ON AND OFF PHENOMENON
  2. RYTARY [Concomitant]
     Active Substance: CARBIDOPA\LEVODOPA
     Indication: PARKINSON^S DISEASE
     Dosage: UNK
     Route: 065
  3. INBRIJA [Suspect]
     Active Substance: LEVODOPA
     Indication: PARKINSON^S DISEASE
     Dosage: 84 MILLIGRAM, UP TO FIVE TIMES PER DAY PRN
     Dates: start: 201908

REACTIONS (7)
  - Dysphonia [Not Recovered/Not Resolved]
  - Abnormal dreams [Unknown]
  - Oropharyngeal pain [Unknown]
  - Device delivery system issue [Unknown]
  - Cough [Not Recovered/Not Resolved]
  - Hyperhidrosis [Recovered/Resolved]
  - Throat irritation [Not Recovered/Not Resolved]
